FAERS Safety Report 9493388 (Version 1)
Quarter: 2013Q3

REPORT INFORMATION
  Report Type: Spontaneous
  Country: IT (occurrence: IT)
  Receive Date: 20130902
  Receipt Date: 20130902
  Transmission Date: 20140515
  Serious: Yes (Hospitalization)
  Sender: FDA-Public Use
  Company Number: IT-MERCK-1308ITA014082

PATIENT
  Age: 68 Year
  Sex: Male

DRUGS (3)
  1. VICTRELIS [Suspect]
     Indication: HEPATITIS C
     Dosage: 1500 MG DAILY
     Route: 048
     Dates: start: 20130619, end: 20130811
  2. REBETOL [Suspect]
     Indication: HEPATITIS C
     Dosage: 1200 MG DAILY
     Route: 048
     Dates: start: 20130522, end: 20130810
  3. PEGINTRON [Suspect]
     Indication: HEPATITIS C
     Dosage: 120 MCG, WEEKLY
     Route: 058
     Dates: start: 20130522, end: 20130811

REACTIONS (2)
  - Generalised oedema [Recovering/Resolving]
  - Blood albumin decreased [Recovering/Resolving]
